FAERS Safety Report 15239712 (Version 1)
Quarter: 2018Q3

REPORT INFORMATION
  Report Type: Spontaneous
  Country: US (occurrence: US)
  Receive Date: 20180803
  Receipt Date: 20180803
  Transmission Date: 20181010
  Serious: Yes (Other)
  Sender: FDA-Public Use
  Company Number: US-SUNOVION-2018SUN003035

PATIENT

DRUGS (2)
  1. LATUDA [Suspect]
     Active Substance: LURASIDONE HYDROCHLORIDE
     Dosage: UNKNOWN
     Route: 048
  2. PRISTIQ EXTENDED?RELEASE [Concomitant]
     Active Substance: DESVENLAFAXINE SUCCINATE
     Dosage: UNKNOWN
     Route: 065

REACTIONS (7)
  - Mood swings [Unknown]
  - Stress [Unknown]
  - Vomiting [Unknown]
  - Nausea [Unknown]
  - Suicidal ideation [Unknown]
  - Depressed mood [Unknown]
  - Drug dose omission [Unknown]
